FAERS Safety Report 4521859-3 (Version None)
Quarter: 2004Q4

REPORT INFORMATION
  Report Type: 
  Country: None (occurrence: None)
  Receive Date: 20041206
  Receipt Date: 20041122
  Transmission Date: 20050328
  Serious: Yes (Hospitalization)
  Sender: FDA-Public Use
  Company Number: 2004-1227780-NL

PATIENT
  Age: 43 Year
  Sex: Male
  Weight: 125.2 kg

DRUGS (7)
  1. REMERON [Suspect]
     Indication: DEPRESSION
     Dosage: 7.5 MG QD, ORAL TOTAL 2 DOSES
     Route: 048
     Dates: start: 20041116, end: 20041118
  2. SEROQUEL [Concomitant]
  3. LITHIUM [Concomitant]
  4. DEPAKOTE [Concomitant]
  5. SYNTHROID [Concomitant]
  6. PARAGORIC TINCTURE [Concomitant]
  7. SINVASTATIN [Concomitant]

REACTIONS (3)
  - DYSPHAGIA [None]
  - INFLAMMATION [None]
  - LARYNGEAL OEDEMA [None]
